FAERS Safety Report 6310221-9 (Version None)
Quarter: 2009Q3

REPORT INFORMATION
  Report Type: 
  Country: None (occurrence: None)
  Receive Date: 20090814
  Receipt Date: 20090805
  Transmission Date: 20100115
  Serious: Yes (Other)
  Sender: FDA-Public Use
  Company Number: GB-ABBOTT-09P-167-0589467-00

PATIENT
  Age: 20 Month
  Sex: Female

DRUGS (1)
  1. EPILIM SYRUP [Suspect]
     Indication: EPILEPSY
     Route: 048
     Dates: start: 20090724

REACTIONS (2)
  - CONVULSION [None]
  - DRUG INEFFECTIVE [None]
